FAERS Safety Report 5913888-X (Version None)
Quarter: 2008Q4

REPORT INFORMATION
  Report Type: 
  Country: None (occurrence: None)
  Receive Date: 20081009
  Receipt Date: 20080930
  Transmission Date: 20090506
  Serious: Yes (Other)
  Sender: FDA-Public Use
  Company Number: B0536917A

PATIENT
  Age: 65 Year
  Sex: Female

DRUGS (1)
  1. VALTREX [Suspect]
     Indication: DRUG USE FOR UNKNOWN INDICATION
     Route: 048

REACTIONS (7)
  - ALTERED STATE OF CONSCIOUSNESS [None]
  - CSF GLUCOSE ABNORMAL [None]
  - CSF GLUCOSE DECREASED [None]
  - CSF GRANULOCYTE COUNT ABNORMAL [None]
  - CSF MONOCYTE COUNT INCREASED [None]
  - CSF PROTEIN INCREASED [None]
  - MENINGEAL DISORDER [None]
